FAERS Safety Report 22112414 (Version 1)
Quarter: 2023Q1

REPORT INFORMATION
  Report Type: Spontaneous
  Country: IT (occurrence: IT)
  Receive Date: 20230319
  Receipt Date: 20230319
  Transmission Date: 20230418
  Serious: Yes (Hospitalization)
  Sender: FDA-Public Use
  Company Number: None

PATIENT
  Age: 72 Year
  Sex: Male

DRUGS (7)
  1. RIVAROXABAN [Suspect]
     Active Substance: RIVAROXABAN
     Indication: Myocardial ischaemia
     Dosage: 5 MG, QD
     Route: 048
     Dates: start: 20160120, end: 20230217
  2. ASPIRIN [Suspect]
     Active Substance: ASPIRIN
     Indication: Antiplatelet therapy
     Route: 048
  3. EZETIMIBE [Concomitant]
     Active Substance: EZETIMIBE
  4. ALFUZOSIN [Concomitant]
     Active Substance: ALFUZOSIN
  5. RIFAXIMIN [Concomitant]
     Active Substance: RIFAXIMIN
  6. EVOLOCUMAB [Concomitant]
     Active Substance: EVOLOCUMAB
  7. RANEXA [Concomitant]
     Active Substance: RANOLAZINE

REACTIONS (5)
  - Dysarthria [Recovering/Resolving]
  - Confusional state [Recovering/Resolving]
  - Asthenia [Recovering/Resolving]
  - Cerebral haemorrhage [Recovering/Resolving]
  - Headache [Recovering/Resolving]

NARRATIVE: CASE EVENT DATE: 20230217
